FAERS Safety Report 24057702 (Version 1)
Quarter: 2024Q3

REPORT INFORMATION
  Report Type: Report from Study
  Country: NL (occurrence: NL)
  Receive Date: 20240706
  Receipt Date: 20240706
  Transmission Date: 20241017
  Serious: Yes (Death)
  Sender: ABBVIE
  Company Number: NL-ABBVIE-5830302

PATIENT
  Age: 80 Year
  Sex: Male

DRUGS (6)
  1. CARBIDOPA\LEVODOPA [Suspect]
     Active Substance: CARBIDOPA\LEVODOPA
     Indication: Parkinson^s disease
     Dosage: MD: 9.0ML, CD: 2.3ML/H, ED: 1.00ML?REMAINS AT 16 HOURS
     Route: 050
     Dates: start: 20240219, end: 20240220
  2. CARBIDOPA\LEVODOPA [Suspect]
     Active Substance: CARBIDOPA\LEVODOPA
     Dosage: MD: 9.0ML, CD: 2.3ML/H, ED: 1.00ML?REMAINS AT 16 HOURS
     Route: 050
     Dates: start: 20240410, end: 20240610
  3. CARBIDOPA\LEVODOPA [Suspect]
     Active Substance: CARBIDOPA\LEVODOPA
     Dosage: MD: 9.0ML, CD: 2.5ML/H, ED: 1.00ML?REMAINS AT 16 HOURS
     Route: 050
     Dates: start: 20240205, end: 20240219
  4. CARBIDOPA\LEVODOPA [Suspect]
     Active Substance: CARBIDOPA\LEVODOPA
     Dosage: MD: 9.0ML, CD: 2.3ML/H, ED: 1.00ML?GOES TO 16 HOURS
     Route: 050
     Dates: start: 20240129, end: 20240205
  5. CARBIDOPA\LEVODOPA [Suspect]
     Active Substance: CARBIDOPA\LEVODOPA
     Dosage: MD: 9.0ML, CD: 2.4ML/H, ED: 1.00ML?REMAINS AT 16 HOURS
     Route: 050
     Dates: start: 20240220, end: 20240410
  6. POLYETHYLENE GLYCOLS [Concomitant]
     Active Substance: POLYETHYLENE GLYCOLS
     Indication: Abnormal faeces
     Dosage: TIME INTERVAL: AS NECESSARY
     Route: 048

REACTIONS (1)
  - Death [Fatal]

NARRATIVE: CASE EVENT DATE: 20240610
